FAERS Safety Report 7554131-8 (Version None)
Quarter: 2011Q2

REPORT INFORMATION
  Report Type: 
  Country: None (occurrence: None)
  Receive Date: 20110614
  Receipt Date: 20110614
  Transmission Date: 20111010
  Serious: Yes (Death)
  Sender: FDA-Public Use
  Company Number: None

PATIENT
  Age: 79 Year
  Sex: Female

DRUGS (10)
  1. REVLIMID [Suspect]
     Indication: MULTIPLE MYELOMA
     Dosage: REVLIMID 10 MG DAILY X21D/28D ORAL
     Route: 048
     Dates: start: 20100301, end: 20101201
  2. IBUPROFEN [Concomitant]
  3. ZOLPIDEM [Concomitant]
  4. CYCLOBENZAPRINE [Concomitant]
  5. ALLOPURINOL [Concomitant]
  6. APAP W/ CODEINE [Concomitant]
  7. ASPIRIN [Concomitant]
  8. MORPHINE [Concomitant]
  9. SIMVASTATIN [Concomitant]
  10. ALBUTEROL SULFATE AUTOHALER [Concomitant]

REACTIONS (12)
  - DYSURIA [None]
  - PANCYTOPENIA [None]
  - DIVERTICULUM [None]
  - DIARRHOEA [None]
  - ASTHENIA [None]
  - ESCHERICHIA INFECTION [None]
  - RESPIRATORY FAILURE [None]
  - COLON CANCER [None]
  - ABDOMINAL PAIN [None]
  - HYPOPHAGIA [None]
  - UNRESPONSIVE TO STIMULI [None]
  - BLOOD CULTURE POSITIVE [None]
